FAERS Safety Report 22593136 (Version 1)
Quarter: 2023Q2

REPORT INFORMATION
  Report Type: Report from Study
  Country: US (occurrence: US)
  Receive Date: 20230613
  Receipt Date: 20230613
  Transmission Date: 20230722
  Serious: Yes (Hospitalization, Other)
  Sender: FDA-Public Use
  Company Number: US-GILEAD-2023-0631957

PATIENT
  Sex: Male

DRUGS (1)
  1. AZTREONAM LYSINE [Suspect]
     Active Substance: AZTREONAM LYSINE
     Indication: Cystic fibrosis
     Dosage: INHALE 75MG VIA NEBULIZER THREE TIMES DAILY. ALTERNATE 28 DAYS ON, AND 28 DAYS OFF.
     Route: 055
     Dates: start: 20190410, end: 202306

REACTIONS (1)
  - Lung transplant [Unknown]
